FAERS Safety Report 21796918 (Version 1)
Quarter: 2022Q4

REPORT INFORMATION
  Report Type: Report from Study
  Country: US (occurrence: US)
  Receive Date: 20221230
  Receipt Date: 20221230
  Transmission Date: 20230113
  Serious: Yes (Death, Other)
  Sender: FDA-Public Use
  Company Number: US-ACADIA PHARMACEUTICALS INC.-ACA-2022-PIM-004480

PATIENT
  Sex: Female

DRUGS (22)
  1. NUPLAZID [Suspect]
     Active Substance: PIMAVANSERIN TARTRATE
     Indication: Parkinson^s disease
     Dosage: 34 MILLIGRAM, QD
     Route: 048
     Dates: start: 202102
  2. ELIQUIS [Concomitant]
     Active Substance: APIXABAN
  3. SINEMET [Concomitant]
     Active Substance: CARBIDOPA\LEVODOPA
  4. FUROSEMIDE [Concomitant]
     Active Substance: FUROSEMIDE
  5. VENTOLIN [Concomitant]
     Active Substance: ALBUTEROL SULFATE
  6. DICLOFENAC [Concomitant]
     Active Substance: DICLOFENAC
  7. POTASSIUM [Concomitant]
     Active Substance: POTASSIUM
  8. BISMUTH SUBSALICYLATE\CALCIUM CARBONATE [Concomitant]
     Active Substance: BISMUTH SUBSALICYLATE\CALCIUM CARBONATE
  9. AMLODIPINE [Concomitant]
     Active Substance: AMLODIPINE BESYLATE
  10. HYOSCYAMINE [Concomitant]
     Active Substance: HYOSCYAMINE
  11. METAMUCIL [Concomitant]
     Active Substance: PLANTAGO SEED
  12. MIRALAX [Concomitant]
     Active Substance: POLYETHYLENE GLYCOL 3350
  13. MELATONIN [Concomitant]
     Active Substance: MELATONIN
  14. TYLENOL [Concomitant]
     Active Substance: ACETAMINOPHEN
  15. NYSTATIN [Concomitant]
     Active Substance: NYSTATIN
  16. CRANBERRY [Concomitant]
     Active Substance: CRANBERRY
  17. ONDANSETRON [Concomitant]
     Active Substance: ONDANSETRON
  18. RIVASTIGMINE [Concomitant]
     Active Substance: RIVASTIGMINE
  19. VITAMINS [Concomitant]
     Active Substance: VITAMINS
  20. OMEPRAZOLE [Concomitant]
     Active Substance: OMEPRAZOLE
  21. COLACE [Concomitant]
     Active Substance: DOCUSATE SODIUM
  22. VERAPAMIL [Concomitant]
     Active Substance: VERAPAMIL HYDROCHLORIDE

REACTIONS (1)
  - Death [Fatal]
